FAERS Safety Report 6653288-0 (Version None)
Quarter: 2010Q1

REPORT INFORMATION
  Report Type: 
  Country: None (occurrence: None)
  Receive Date: 20100326
  Receipt Date: 20071206
  Transmission Date: 20100710
  Serious: No
  Sender: FDA-Public Use
  Company Number: DE-ROCHE-487864

PATIENT
  Sex: Female

DRUGS (1)
  1. TAMIFLU [Suspect]
     Indication: FEBRILE INFECTION
     Route: 065
     Dates: start: 20070303

REACTIONS (2)
  - NO ADVERSE EVENT [None]
  - PREGNANCY [None]
